FAERS Safety Report 5832184-2 (Version None)
Quarter: 2008Q3

REPORT INFORMATION
  Report Type: 
  Country: None (occurrence: None)
  Receive Date: 20080804
  Receipt Date: 20080730
  Transmission Date: 20090109
  Serious: Yes (Life-Threatening, Hospitalization)
  Sender: FDA-Public Use
  Company Number: JP-AVENTIS-200812012JP

PATIENT
  Age: 71 Year
  Sex: Female
  Weight: 60 kg

DRUGS (12)
  1. TAXOTERE [Suspect]
     Route: 041
     Dates: start: 20080519, end: 20080610
  2. XELODA [Suspect]
     Route: 048
     Dates: start: 20080519, end: 20080624
  3. LOXONIN                            /00890701/ [Suspect]
     Route: 048
  4. KYTRIL                             /01178101/ [Concomitant]
     Route: 041
     Dates: start: 20080519, end: 20080610
  5. FAMOTIDINE [Concomitant]
     Route: 041
     Dates: start: 20080519, end: 20080610
  6. PYDOXAL [Concomitant]
     Route: 048
     Dates: start: 20080519, end: 20080624
  7. DECADRON [Concomitant]
     Route: 041
     Dates: start: 20080519, end: 20080610
  8. ALLELOCK [Concomitant]
  9. NEOMALLERMIN [Concomitant]
  10. ADALAT [Concomitant]
  11. BLOPRESS [Concomitant]
  12. LANSOPRAZOLE [Concomitant]

REACTIONS (3)
  - GASTROINTESTINAL PERFORATION [None]
  - MELAENA [None]
  - RECTAL ULCER [None]
